FAERS Safety Report 9931397 (Version 1)
Quarter: 2014Q1

REPORT INFORMATION
  Report Type: Spontaneous
  Country: US (occurrence: US)
  Receive Date: 20140228
  Receipt Date: 20140228
  Transmission Date: 20141002
  Serious: No
  Sender: FDA-Public Use
  Company Number: US-BIOGENIDEC-2014BI018971

PATIENT
  Age: 47 Year
  Sex: Male

DRUGS (1)
  1. AVONEX [Suspect]
     Indication: MULTIPLE SCLEROSIS
     Route: 030
     Dates: start: 20140111

REACTIONS (4)
  - Erythema [Not Recovered/Not Resolved]
  - Haemorrhage [Recovered/Resolved]
  - Hallucination [Recovered/Resolved]
  - Pruritus [Not Recovered/Not Resolved]
